FAERS Safety Report 22104550 (Version 2)
Quarter: 2023Q1

REPORT INFORMATION
  Report Type: Report from Study
  Country: BE (occurrence: BE)
  Receive Date: 20230316
  Receipt Date: 20230321
  Transmission Date: 20230418
  Serious: Yes (Hospitalization, Other)
  Sender: FDA-Public Use
  Company Number: BE-BoehringerIngelheim-2023-BI-222378

PATIENT
  Age: 76 Year
  Sex: Female
  Weight: 64 kg

DRUGS (28)
  1. ALDACTONE [Suspect]
     Active Substance: SPIRONOLACTONE
     Indication: Cardiac failure
     Dosage: 25 MG, DAILY
     Route: 048
     Dates: end: 20230228
  2. EMPAGLIFLOZIN [Suspect]
     Active Substance: EMPAGLIFLOZIN
     Indication: Cardiac failure
     Dosage: 10 MG, DAILY
     Route: 048
     Dates: start: 20220622, end: 20230228
  3. EMPAGLIFLOZIN [Suspect]
     Active Substance: EMPAGLIFLOZIN
     Dosage: 10 MG, DAILY
     Route: 048
     Dates: start: 20230302, end: 20230302
  4. BUMETANIDE [Suspect]
     Active Substance: BUMETANIDE
     Indication: Cardiac failure
     Dosage: 1 MG, DAILY
     Route: 048
     Dates: end: 20230228
  5. COVERAM [Suspect]
     Active Substance: AMLODIPINE\PERINDOPRIL
     Indication: Hypertension
     Dosage: 10/5 MG
     Route: 048
     Dates: end: 20230228
  6. COVERAM [Suspect]
     Active Substance: AMLODIPINE\PERINDOPRIL
     Dosage: 5/5 MG ONCE A DAY
     Route: 048
     Dates: start: 20230302, end: 20230302
  7. QUININE SULFATE [Concomitant]
     Active Substance: QUININE SULFATE
     Indication: Muscle spasms
     Dosage: 300 MG, DAILY
     Route: 048
  8. QUININE SULFATE [Concomitant]
     Active Substance: QUININE SULFATE
     Indication: Prophylaxis
  9. BILASTINE [Concomitant]
     Active Substance: BILASTINE
     Indication: Gout
     Dosage: 20 MG, DAILY
     Route: 048
  10. FULTIVIT D3 [Concomitant]
     Indication: Prophylaxis
     Dosage: 20000 IU, DAILY
     Route: 048
  11. FULTIVIT D3 [Concomitant]
     Indication: Vitamin D deficiency
  12. ALLOPURINOL [Concomitant]
     Active Substance: ALLOPURINOL
     Indication: Gout
     Dosage: 100 MG, DAILY
     Route: 048
  13. ESCITALOPRAM [Concomitant]
     Active Substance: ESCITALOPRAM OXALATE
     Indication: Prophylaxis
     Dosage: 10 MG, DAILY
     Route: 048
  14. ESCITALOPRAM [Concomitant]
     Active Substance: ESCITALOPRAM OXALATE
     Indication: Depression
  15. LIPITOR [Concomitant]
     Active Substance: ATORVASTATIN CALCIUM
     Indication: Hypercholesterolaemia
     Dosage: 10 MG, DAILY
     Route: 048
  16. CLOPIDOGREL [Concomitant]
     Active Substance: CLOPIDOGREL BISULFATE
     Indication: Thrombosis prophylaxis
     Dosage: 75 MG, DAILY
     Route: 048
  17. MAGNECAPS [Concomitant]
     Dosage: UNK
     Route: 048
  18. PANTOMED D [Concomitant]
     Indication: Prophylaxis against gastrointestinal ulcer
     Dosage: 20 MG, DAILY
     Route: 048
  19. MONTELUKAST [Concomitant]
     Active Substance: MONTELUKAST SODIUM
     Indication: Chronic obstructive pulmonary disease
     Dosage: 10 MG, DAILY
     Route: 048
  20. TRAMADOL HYDROCHLORIDE [Concomitant]
     Active Substance: TRAMADOL HYDROCHLORIDE
     Dosage: AS NEEDED
     Route: 048
  21. CREON FORTE [Concomitant]
     Indication: Post cholecystectomy syndrome
     Dosage: 2400 MG, DAILY
     Route: 048
  22. LORAZEPAM [Concomitant]
     Active Substance: LORAZEPAM
     Indication: Depression
     Dosage: 1.25 MG, DAILY
     Route: 048
  23. LORAZEPAM [Concomitant]
     Active Substance: LORAZEPAM
     Indication: Prophylaxis
  24. OCTREOTIDE ACETATE [Concomitant]
     Active Substance: OCTREOTIDE ACETATE
     Indication: Gastrointestinal disorder
     Dosage: 30 MG, EVERY 3 WEEKS
     Route: 048
  25. FLUTICASONE FUROATE\VILANTEROL TRIFENATATE [Concomitant]
     Active Substance: FLUTICASONE FUROATE\VILANTEROL TRIFENATATE
     Indication: Chronic obstructive pulmonary disease
     Dosage: 92/22 ?G
     Route: 055
  26. DIAZEPAM [Concomitant]
     Active Substance: DIAZEPAM
     Indication: Prophylaxis
     Dosage: 5 MG, DAILY
     Route: 048
  27. DIAZEPAM [Concomitant]
     Active Substance: DIAZEPAM
     Indication: Depression
  28. MOMETASONE [Concomitant]
     Active Substance: MOMETASONE
     Dosage: 100 UG, DAILY
     Route: 045

REACTIONS (3)
  - Acute kidney injury [Recovered/Resolved]
  - Diarrhoea [Not Recovered/Not Resolved]
  - Hypotension [Not Recovered/Not Resolved]

NARRATIVE: CASE EVENT DATE: 20230226
